FAERS Safety Report 6547172-0 (Version None)
Quarter: 2010Q1

REPORT INFORMATION
  Report Type: 
  Country: None (occurrence: None)
  Receive Date: 20100122
  Receipt Date: 20100113
  Transmission Date: 20100710
  Serious: Yes (Death, Hospitalization)
  Sender: FDA-Public Use
  Company Number: GXKR2010GB00715

PATIENT
  Age: 62 Year
  Sex: Female

DRUGS (5)
  1. PARACETAMOL+CODEINE (NGX) [Suspect]
     Route: 065
  2. DIAZEPAM [Suspect]
     Route: 065
  3. CHLORAL HYDRATE [Suspect]
     Route: 065
  4. ALCOHOL [Suspect]
     Route: 065
  5. METHOTREXATE (NGX) [Suspect]
     Indication: RHEUMATOID ARTHRITIS
     Route: 065

REACTIONS (9)
  - AREFLEXIA [None]
  - CEREBROVASCULAR ACCIDENT [None]
  - HEMIPARESIS [None]
  - LOSS OF CONSCIOUSNESS [None]
  - MECHANICAL VENTILATION [None]
  - OBSTRUCTIVE AIRWAYS DISORDER [None]
  - OVERDOSE [None]
  - RESPIRATORY DISORDER [None]
  - SUICIDE ATTEMPT [None]
